FAERS Safety Report 8083639-4 (Version None)
Quarter: 2012Q1

REPORT INFORMATION
  Report Type: 
  Country: None (occurrence: None)
  Receive Date: 20120127
  Receipt Date: 20110111
  Transmission Date: 20120608
  Serious: Yes (Hospitalization)
  Sender: FDA-Public Use
  Company Number: US-ABBOTT-11P-163-0696619-00

PATIENT
  Sex: Female
  Weight: 77.18 kg

DRUGS (5)
  1. PREDNISONE TAB [Concomitant]
     Indication: RHEUMATOID ARTHRITIS
  2. OXYCODONE HCL [Concomitant]
     Indication: PAIN
  3. HUMIRA [Suspect]
     Indication: RHEUMATOID ARTHRITIS
     Dates: start: 20080101
  4. METHOTREXATE [Concomitant]
     Indication: RHEUMATOID ARTHRITIS
  5. FENTANYL-100 [Concomitant]
     Indication: PAIN
     Dosage: PRN

REACTIONS (4)
  - SINUSITIS [None]
  - DEHYDRATION [None]
  - SYNCOPE [None]
  - BRONCHITIS [None]
